FAERS Safety Report 16738507 (Version 2)
Quarter: 2019Q3

REPORT INFORMATION
  Report Type: Spontaneous
  Country: AR (occurrence: AR)
  Receive Date: 20190826
  Receipt Date: 20190910
  Transmission Date: 20191005
  Serious: Yes (Hospitalization)
  Sender: FDA-Public Use
  Company Number: AR-AMGEN-ARGSP2019135933

PATIENT
  Age: 58 Year
  Sex: Female

DRUGS (5)
  1. ENBREL [Suspect]
     Active Substance: ETANERCEPT
     Indication: RHEUMATOID ARTHRITIS
     Dosage: 50 MILLIGRAM, QWK
     Route: 065
     Dates: start: 20150423
  2. NOCTE [Concomitant]
     Dosage: A QUARTER TABLET, DAILY
     Route: 048
     Dates: start: 201902
  3. ALPLAX [Concomitant]
     Active Substance: ALPRAZOLAM
     Dosage: 0.5 MILLIGRAM, QD
     Route: 065
     Dates: start: 201902
  4. T4 [Concomitant]
     Active Substance: LEVOTHYROXINE
     Dosage: 100 MILLIGRAM, QD
     Route: 065
     Dates: start: 1989
  5. TIARIX [Concomitant]
     Dosage: ONE AND A HALF TABLET, DAILY
     Route: 048
     Dates: start: 201902

REACTIONS (3)
  - Aphthous ulcer [Recovered/Resolved]
  - Aphonia [Recovering/Resolving]
  - Laryngitis [Not Recovered/Not Resolved]

NARRATIVE: CASE EVENT DATE: 20190815
